FAERS Safety Report 13256779 (Version 1)
Quarter: 2017Q1

REPORT INFORMATION
  Report Type: Spontaneous
  Country: US (occurrence: US)
  Receive Date: 20170221
  Receipt Date: 20170221
  Transmission Date: 20170428
  Serious: Yes (Hospitalization, Other)
  Sender: FDA-Public Use
  Company Number: US-BAXTER-2017BAX006800

PATIENT
  Sex: Male

DRUGS (26)
  1. VINCRISTINE [Suspect]
     Active Substance: VINCRISTINE
     Dosage: REINDUCTION: BLOCK 1
     Route: 065
     Dates: start: 20151204
  2. METHOTREXATE. [Suspect]
     Active Substance: METHOTREXATE
     Dosage: INTERIM MAINTENANCE I: HD (HIGH DOSE):5G/M2
     Route: 042
     Dates: start: 20150218
  3. CYTARABINE. [Suspect]
     Active Substance: CYTARABINE
     Dosage: CONSOLIDATION
     Route: 058
  4. ERWINIA ASPARAGINASE [Suspect]
     Active Substance: ASPARAGINASE ERWINIA CHRYSANTHEMI
     Indication: ACUTE LYMPHOCYTIC LEUKAEMIA
     Dosage: REINDUCTION: BLOCK 2
     Route: 065
     Dates: start: 20160108
  5. ERWINIA ASPARAGINASE [Suspect]
     Active Substance: ASPARAGINASE ERWINIA CHRYSANTHEMI
     Dosage: REINDUCTION: BLOCK 3
     Route: 065
     Dates: start: 20160226
  6. ETOPOSIDE. [Suspect]
     Active Substance: ETOPOSIDE
     Indication: ACUTE LYMPHOCYTIC LEUKAEMIA
     Dosage: REINDUCTION: BLOCK 2
     Route: 065
     Dates: start: 20160108
  7. CYCLOPHOSPHAMIDE FOR INJECTION, USP [Suspect]
     Active Substance: CYCLOPHOSPHAMIDE
     Dosage: REINDUCTION: BLOCK 2
     Route: 042
     Dates: start: 20160108
  8. 6-MERCAPTOPURINE [Suspect]
     Active Substance: MERCAPTOPURINE
     Indication: ACUTE LYMPHOCYTIC LEUKAEMIA
     Dosage: CONSOLIDATION
     Route: 048
  9. ARA-C [Suspect]
     Active Substance: CYTARABINE
     Indication: ACUTE LYMPHOCYTIC LEUKAEMIA
     Dosage: REINDUCTION: BLOCK 2
     Route: 065
     Dates: start: 20160108
  10. VINCRISTINE [Suspect]
     Active Substance: VINCRISTINE
     Indication: ACUTE LYMPHOCYTIC LEUKAEMIA
     Dosage: INDUCTION
     Route: 065
  11. PEG/L-ASPARAGINASE [Suspect]
     Active Substance: PEGASPARGASE
     Indication: ACUTE LYMPHOCYTIC LEUKAEMIA
     Dosage: INDUCTION
     Route: 065
  12. CYTARABINE. [Suspect]
     Active Substance: CYTARABINE
     Indication: ACUTE LYMPHOCYTIC LEUKAEMIA
     Dosage: CONSOLIDATION
     Route: 042
  13. DEXAMETHASONE. [Suspect]
     Active Substance: DEXAMETHASONE
     Indication: ACUTE LYMPHOCYTIC LEUKAEMIA
     Dosage: REINDUCTION: BLOCK 1
     Route: 065
     Dates: start: 20151204
  14. MITOXANTRONE [Suspect]
     Active Substance: MITOXANTRONE HYDROCHLORIDE
     Indication: ACUTE LYMPHOCYTIC LEUKAEMIA
     Dosage: REINDUCTION: BLOCK 1
     Route: 065
     Dates: start: 20151204
  15. PEG/L-ASPARAGINASE [Suspect]
     Active Substance: PEGASPARGASE
     Dosage: REINDUCTION: BLOCK 1
     Route: 065
     Dates: start: 20151204
  16. METHOTREXATE. [Suspect]
     Active Substance: METHOTREXATE
     Dosage: INTERIM MAINTENANCE I
     Route: 037
     Dates: start: 20150218
  17. METHOTREXATE. [Suspect]
     Active Substance: METHOTREXATE
     Dosage: REINDUCTION: BLOCK 2
     Route: 065
     Dates: start: 20160108
  18. ARA-C [Suspect]
     Active Substance: CYTARABINE
     Dosage: REINDUCTION: BLOCK 3
     Route: 065
     Dates: start: 20160226
  19. CYCLOPHOSPHAMIDE FOR INJECTION, USP [Suspect]
     Active Substance: CYCLOPHOSPHAMIDE
     Indication: ACUTE LYMPHOCYTIC LEUKAEMIA
     Dosage: CONSOLIDATION
     Route: 042
  20. VINCRISTINE [Suspect]
     Active Substance: VINCRISTINE
     Dosage: REINDUCTION: BLOCK 2
     Route: 065
     Dates: start: 20160108
  21. PREDNISONE. [Suspect]
     Active Substance: PREDNISONE
     Indication: ACUTE LYMPHOCYTIC LEUKAEMIA
     Dosage: INDUCTION
     Route: 065
  22. DEXAMETHASONE. [Suspect]
     Active Substance: DEXAMETHASONE
     Dosage: REINDUCTION: BLOCK 2
     Route: 065
     Dates: start: 20160108
  23. VINCRISTINE [Suspect]
     Active Substance: VINCRISTINE
     Dosage: REINDUCTION: BLOCK 3
     Route: 065
     Dates: start: 20160226
  24. METHOTREXATE. [Suspect]
     Active Substance: METHOTREXATE
     Indication: ACUTE LYMPHOCYTIC LEUKAEMIA
     Dosage: INDUCTION
     Route: 037
  25. METHOTREXATE. [Suspect]
     Active Substance: METHOTREXATE
     Dosage: CONSOLIDATION
     Route: 037
  26. DEXAMETHASONE. [Suspect]
     Active Substance: DEXAMETHASONE
     Dosage: REINDUCTION: BLOCK 3
     Route: 065
     Dates: start: 20160226

REACTIONS (12)
  - Acute lymphocytic leukaemia recurrent [Unknown]
  - Acute lymphocytic leukaemia refractory [Unknown]
  - Septic shock [Unknown]
  - Mucosal inflammation [Unknown]
  - Posterior reversible encephalopathy syndrome [Unknown]
  - Acute lymphocytic leukaemia recurrent [Unknown]
  - Acute lymphocytic leukaemia recurrent [Unknown]
  - Disseminated intravascular coagulation [Unknown]
  - Escherichia sepsis [Unknown]
  - Colitis [Unknown]
  - Hepatomegaly [Unknown]
  - Toxicity to various agents [Unknown]

NARRATIVE: CASE EVENT DATE: 201512
